FAERS Safety Report 14379785 (Version 3)
Quarter: 2018Q2

REPORT INFORMATION
  Report Type: Spontaneous
  Country: US (occurrence: US)
  Receive Date: 20180112
  Receipt Date: 20180422
  Transmission Date: 20180711
  Serious: Yes (Other)
  Sender: FDA-Public Use
  Company Number: US-APOTEX-2018AP005451

PATIENT
  Age: 14 Year
  Sex: Male

DRUGS (4)
  1. FLUTICASONE. [Concomitant]
     Active Substance: FLUTICASONE
     Indication: ASTHMA
     Dosage: 200 MG, TID
     Route: 065
  2. CITALOPRAM [Suspect]
     Active Substance: CITALOPRAM HYDROBROMIDE
     Indication: ANXIETY
     Dosage: UNK
     Route: 065
  3. SALMETEROL [Concomitant]
     Active Substance: SALMETEROL
     Indication: ASTHMA
     Dosage: UNK, PRN
     Route: 065
  4. ALBUTEROL SULFATE  INHALATION SOLUTION [Suspect]
     Active Substance: ALBUTEROL SULFATE
     Indication: ASTHMA
     Dosage: UNK, NEBULIZATION, PRN
     Route: 050

REACTIONS (10)
  - Dysmetria [Not Recovered/Not Resolved]
  - Treatment noncompliance [Unknown]
  - Hyperreflexia [Not Recovered/Not Resolved]
  - Anxiety [Not Recovered/Not Resolved]
  - Feeling jittery [Not Recovered/Not Resolved]
  - Hypertension [Not Recovered/Not Resolved]
  - Condition aggravated [Not Recovered/Not Resolved]
  - Tachycardia [Not Recovered/Not Resolved]
  - Overdose [Unknown]
  - Obsessive-compulsive disorder [Not Recovered/Not Resolved]
